FAERS Safety Report 11913612 (Version 3)
Quarter: 2016Q2

REPORT INFORMATION
  Report Type: Spontaneous
  Country: US (occurrence: US)
  Receive Date: 20160113
  Receipt Date: 20160425
  Transmission Date: 20160815
  Serious: No
  Sender: FDA-Public Use
  Company Number: US-PFIZER INC-2015474301

PATIENT
  Age: 57 Year
  Sex: Female
  Weight: 67 kg

DRUGS (2)
  1. IBRANCE [Suspect]
     Active Substance: PALBOCICLIB
     Dosage: 100 MG, CYCLIC, (DAYS 1-21 Q28 DAYS)
     Route: 048
     Dates: end: 20160411
  2. IBRANCE [Suspect]
     Active Substance: PALBOCICLIB
     Indication: BREAST CANCER
     Dosage: 125 MG, CYCLIC (DAY 1- 21 Q 28 DAYS)
     Route: 048
     Dates: start: 20151211, end: 2016

REACTIONS (13)
  - Product use issue [Unknown]
  - Vomiting [Recovering/Resolving]
  - Alopecia [Unknown]
  - Diarrhoea [Recovering/Resolving]
  - Pruritus [Unknown]
  - Nausea [Recovering/Resolving]
  - Musculoskeletal chest pain [Unknown]
  - Back pain [Unknown]
  - Burning sensation [Unknown]
  - Memory impairment [Unknown]
  - Rash [Unknown]
  - Disease progression [Unknown]
  - Breast cancer [Unknown]

NARRATIVE: CASE EVENT DATE: 20151210
